FAERS Safety Report 6980634-0 (Version None)
Quarter: 2010Q3

REPORT INFORMATION
  Report Type: 
  Country: None (occurrence: None)
  Receive Date: 20100914
  Receipt Date: 20100902
  Transmission Date: 20110219
  Serious: Yes (Life-Threatening, Hospitalization)
  Sender: FDA-Public Use
  Company Number: GB-WATSON-2010-12010

PATIENT
  Age: 88 Year
  Sex: Female

DRUGS (9)
  1. RISPERDONE [Suspect]
     Indication: SENILE PSYCHOSIS
     Dosage: 1 1/2 MG, DAILY
     Route: 048
     Dates: start: 20100728
  2. BUMETANIDE [Suspect]
     Indication: PULMONARY OEDEMA
     Dosage: 1 MG, BID
     Route: 048
     Dates: start: 20100813, end: 20100814
  3. AMLODIPINE [Concomitant]
     Indication: PRODUCT USED FOR UNKNOWN INDICATION
     Dosage: UNK
  4. DOXAZOSIN MESYLATE [Concomitant]
     Indication: PRODUCT USED FOR UNKNOWN INDICATION
  5. FLUCLOXACILLIN [Concomitant]
     Indication: CELLULITIS
     Dosage: 500 MG, QID
  6. FUROSEMIDE [Concomitant]
     Indication: RALES
     Dosage: 40 MG, BID
  7. FUROSEMIDE [Concomitant]
     Indication: OEDEMA PERIPHERAL
  8. MOXONIDINE [Concomitant]
     Indication: PRODUCT USED FOR UNKNOWN INDICATION
  9. ZOPICLONE [Concomitant]
     Indication: PRODUCT USED FOR UNKNOWN INDICATION

REACTIONS (8)
  - ASTHENIA [None]
  - BRADYCARDIA [None]
  - HYPERSENSITIVITY [None]
  - HYPOTENSION [None]
  - HYPOTHERMIA [None]
  - LIP SWELLING [None]
  - MALAISE [None]
  - TACHYPNOEA [None]
